FAERS Safety Report 7516371-3 (Version None)
Quarter: 2011Q2

REPORT INFORMATION
  Report Type: 
  Country: None (occurrence: None)
  Receive Date: 20110601
  Receipt Date: 20110518
  Transmission Date: 20111010
  Serious: Yes (Other)
  Sender: FDA-Public Use
  Company Number: CA-ELI_LILLY_AND_COMPANY-CA201105005183

PATIENT
  Sex: Female

DRUGS (12)
  1. PLAVIX [Concomitant]
  2. ZYPREXA [Suspect]
     Dosage: 10 MG, EACH EVENING
  3. QUETIAPINE [Concomitant]
  4. SERTRALINE HYDROCHLORIDE [Concomitant]
  5. CITALOPRAM HYDROBROMIDE [Concomitant]
  6. ZYPREXA [Suspect]
     Dosage: 25 MG, QD
  7. ZIPRASIDONE HCL [Concomitant]
  8. ZYPREXA [Suspect]
     Indication: SCHIZOPHRENIA
     Dosage: 15 MG, EACH EVENING
     Dates: start: 20000602, end: 20100504
  9. ZYPREXA [Suspect]
     Dosage: 5 MG, EACH EVENING
  10. PERINDOPRIL ERBUMINE [Concomitant]
  11. CLONAZEPAM [Concomitant]
  12. MONOPRIL [Concomitant]

REACTIONS (7)
  - WEIGHT INCREASED [None]
  - TRANSIENT ISCHAEMIC ATTACK [None]
  - TYPE 2 DIABETES MELLITUS [None]
  - BLOOD TRIGLYCERIDES INCREASED [None]
  - OVERDOSE [None]
  - LIVER FUNCTION TEST ABNORMAL [None]
  - BLOOD CHOLESTEROL INCREASED [None]
